FAERS Safety Report 9311872 (Version 1)
Quarter: 2013Q2

REPORT INFORMATION
  Report Type: Spontaneous
  Country: GB (occurrence: GB)
  Receive Date: 20130528
  Receipt Date: 20130528
  Transmission Date: 20140414
  Serious: Yes (Life-Threatening, Hospitalization, Other)
  Sender: FDA-Public Use
  Company Number: PHHY2013GB052189

PATIENT
  Age: 80 Year
  Sex: Female
  Weight: 63.5 kg

DRUGS (8)
  1. INDAPAMIDE [Suspect]
     Indication: HYPERTENSION
     Dosage: 1.5 MG
     Route: 048
     Dates: start: 20130429, end: 20130513
  2. SIMVASTATIN [Concomitant]
  3. LEVOTHYROXINE [Concomitant]
  4. AMLODIPINE [Concomitant]
  5. PERINDOPRIL ERBUMINE [Concomitant]
  6. ASPIRIN [Concomitant]
  7. ALENDRONIC ACID [Concomitant]
  8. PREDNISOLONE [Concomitant]

REACTIONS (3)
  - Hyponatraemia [Recovering/Resolving]
  - Loss of consciousness [Unknown]
  - Vomiting [Unknown]
